FAERS Safety Report 6618760-8 (Version None)
Quarter: 2010Q1

REPORT INFORMATION
  Report Type: 
  Country: None (occurrence: None)
  Receive Date: 20100305
  Receipt Date: 20100305
  Transmission Date: 20100710
  Serious: Yes (Death, Life-Threatening, Hospitalization, Disabling, Other)
  Sender: FDA-Public Use
  Company Number: None

PATIENT
  Sex: Female
  Weight: 60 kg

DRUGS (1)
  1. CYTOXAN [Suspect]
     Indication: T-CELL LYMPHOMA STAGE IV
     Dosage: SEE B-6 SEE B-6 IV
     Route: 042
     Dates: start: 20090902

REACTIONS (1)
  - UNEVALUABLE EVENT [None]
